FAERS Safety Report 13847101 (Version 2)
Quarter: 2017Q3

REPORT INFORMATION
  Report Type: Spontaneous
  Country: JP (occurrence: JP)
  Receive Date: 20170808
  Receipt Date: 20170810
  Transmission Date: 20171127
  Serious: Yes (Other)
  Sender: FDA-Public Use
  Company Number: JP-PFIZER INC-2017336878

PATIENT
  Age: 73 Year
  Sex: Male

DRUGS (9)
  1. TAMSULOSIN [Concomitant]
     Active Substance: TAMSULOSIN
     Dosage: 0.2 MG, ONCE A DAY
  2. CELECOX [Suspect]
     Active Substance: CELECOXIB
     Indication: PAIN
     Dosage: 400 MG, DAILY
     Route: 048
  3. TEGRETOL [Concomitant]
     Active Substance: CARBAMAZEPINE
     Dosage: 200 MG, TWICE A DAY
  4. SERENACE [Concomitant]
     Active Substance: HALOPERIDOL
     Dosage: 1.5 MG, ONCE A DAY
  5. HIBERNA [Concomitant]
     Active Substance: PROMETHAZINE HYDROCHLORIDE
     Dosage: 25 MG, ONCE A DAY
  6. LIMAS [Interacting]
     Active Substance: LITHIUM CARBONATE
     Dosage: 400 MG, TWICE A DAY
  7. AMOBAN [Concomitant]
     Active Substance: ZOPICLONE
     Dosage: 10 MG, ONCE A DAY
  8. URSO [Concomitant]
     Active Substance: URSODIOL
     Dosage: 100 MG, THRICE A DAY
  9. MAGMITT [Concomitant]
     Active Substance: MAGNESIUM OXIDE
     Dosage: 330 MG, THRICE A DAY

REACTIONS (5)
  - Sinus bradycardia [Recovered/Resolved]
  - Toxicity to various agents [Recovered/Resolved]
  - Infection [Unknown]
  - Drug interaction [Recovered/Resolved]
  - Altered state of consciousness [Recovered/Resolved]
